FAERS Safety Report 19347792 (Version 1)
Quarter: 2021Q2

REPORT INFORMATION
  Report Type: Spontaneous
  Country: US (occurrence: US)
  Receive Date: 20210528
  Receipt Date: 20210528
  Transmission Date: 20210717
  Serious: Yes (Hospitalization)
  Sender: FDA-Public Use
  Company Number: None

PATIENT
  Age: 37 Year
  Sex: Male

DRUGS (1)
  1. ABILIFY MAINTENA [Suspect]
     Active Substance: ARIPIPRAZOLE
     Indication: BIPOLAR DISORDER
     Dosage: ?          QUANTITY:1 DF DOSAGE FORM;?
     Route: 058
     Dates: start: 20210325, end: 20210422

REACTIONS (2)
  - Seizure [None]
  - Therapy cessation [None]

NARRATIVE: CASE EVENT DATE: 20210325
